FAERS Safety Report 9767583 (Version 2)
Quarter: 2013Q4

REPORT INFORMATION
  Report Type: Spontaneous
  Country: US (occurrence: US)
  Receive Date: 20131217
  Receipt Date: 20131217
  Transmission Date: 20140711
  Serious: No
  Sender: FDA-Public Use
  Company Number: US-GILEAD-2009-0024943

PATIENT
  Age: 56 Year
  Sex: Male
  Weight: 81.65 kg

DRUGS (3)
  1. VIREAD [Suspect]
     Indication: HIV INFECTION
  2. PREZISTA [Concomitant]
  3. ISENTRESS [Concomitant]

REACTIONS (2)
  - Blood creatinine abnormal [Recovered/Resolved]
  - Protein urine present [Unknown]
